FAERS Safety Report 10908319 (Version 4)
Quarter: 2015Q3

REPORT INFORMATION
  Report Type: Spontaneous
  Country: US (occurrence: US)
  Receive Date: 20150312
  Receipt Date: 20150714
  Transmission Date: 20151125
  Serious: Yes (Death, Hospitalization)
  Sender: FDA-Public Use
  Company Number: US-ACTELION-A-NJ2015-114049

PATIENT
  Age: 76 Year
  Sex: Female

DRUGS (13)
  1. GLIPIZIDE. [Concomitant]
     Active Substance: GLIPIZIDE
  2. WARFARIN [Concomitant]
     Active Substance: WARFARIN
  3. SPIRIVA [Concomitant]
     Active Substance: TIOTROPIUM BROMIDE MONOHYDRATE
  4. CENTRUM SILVER [Concomitant]
     Active Substance: VITAMINS
  5. REMODULIN [Concomitant]
     Active Substance: TREPROSTINIL
     Dosage: 32.6 NG/KG, PER MIN
     Route: 042
     Dates: start: 20150115
  6. REMODULIN [Concomitant]
     Active Substance: TREPROSTINIL
     Dosage: 99.8 NG/KG, PER MIN
  7. OPSUMIT [Suspect]
     Active Substance: MACITENTAN
     Indication: PULMONARY ARTERIAL HYPERTENSION
     Dosage: 10 MG, QD
     Route: 048
     Dates: start: 20140110, end: 20150624
  8. ADCIRCA [Concomitant]
     Active Substance: TADALAFIL
  9. CALCIUM [Concomitant]
     Active Substance: CALCIUM
  10. METFORMIN [Concomitant]
     Active Substance: METFORMIN HYDROCHLORIDE
  11. SYMBICORT [Concomitant]
     Active Substance: BUDESONIDE\FORMOTEROL FUMARATE DIHYDRATE
  12. DILTIAZEM [Concomitant]
     Active Substance: DILTIAZEM
  13. ENALAPRIL [Concomitant]
     Active Substance: ENALAPRIL

REACTIONS (8)
  - Respiratory distress [Unknown]
  - Dyspnoea [Unknown]
  - Death [Fatal]
  - Eosinophilia [Unknown]
  - Oxygen saturation decreased [Not Recovered/Not Resolved]
  - Strongyloidiasis [Unknown]
  - Pulmonary fibrosis [Unknown]
  - Hypoxia [Not Recovered/Not Resolved]

NARRATIVE: CASE EVENT DATE: 20150226
